FAERS Safety Report 8344787-4 (Version None)
Quarter: 2012Q2

REPORT INFORMATION
  Report Type: 
  Country: None (occurrence: None)
  Receive Date: 20120508
  Receipt Date: 20120501
  Transmission Date: 20120825
  Serious: Yes (Hospitalization)
  Sender: FDA-Public Use
  Company Number: US-GLAXOSMITHKLINE-A0845239A

PATIENT
  Age: 38 Year
  Sex: Male
  Weight: 122.7 kg

DRUGS (8)
  1. INSULIN [Concomitant]
  2. GLUCOPHAGE [Concomitant]
  3. GLIPIZIDE [Concomitant]
  4. AVANDIA [Suspect]
     Indication: DIABETES MELLITUS
     Dosage: 4MG TWICE PER DAY
     Route: 048
     Dates: start: 19990101, end: 20080401
  5. AVANDAMET [Suspect]
     Indication: DIABETES MELLITUS
     Dosage: 1TAB TWICE PER DAY
     Route: 048
     Dates: start: 20041201, end: 20100101
  6. GLUCOVANCE [Concomitant]
  7. VIOXX [Concomitant]
  8. HYZAAR [Concomitant]

REACTIONS (4)
  - CORONARY ARTERY DISEASE [None]
  - HEADACHE [None]
  - CEREBROVASCULAR ACCIDENT [None]
  - MYOCARDIAL INFARCTION [None]
